FAERS Safety Report 17825541 (Version 2)
Quarter: 2020Q2

REPORT INFORMATION
  Report Type: Spontaneous
  Country: DE (occurrence: DE)
  Receive Date: 20200526
  Receipt Date: 20200529
  Transmission Date: 20200714
  Serious: Yes (Other)
  Sender: FDA-Public Use
  Company Number: DE-PFIZER INC-2020202517

PATIENT
  Sex: Male
  Weight: 78 kg

DRUGS (4)
  1. PANTOPRAZOLE [Suspect]
     Active Substance: PANTOPRAZOLE
     Dosage: UNK
     Route: 065
  2. ELIQUIS [Suspect]
     Active Substance: APIXABAN
     Dosage: UNK
     Route: 065
  3. OFEV [Suspect]
     Active Substance: NINTEDANIB
     Indication: IDIOPATHIC PULMONARY FIBROSIS
     Dosage: UNK
     Route: 065
  4. NEBIVOLOL. [Suspect]
     Active Substance: NEBIVOLOL
     Dosage: UNK
     Route: 065

REACTIONS (2)
  - Idiopathic pulmonary fibrosis [Unknown]
  - Hepatic enzyme increased [Unknown]
